FAERS Safety Report 7438252-6 (Version None)
Quarter: 2011Q2

REPORT INFORMATION
  Report Type: 
  Country: None (occurrence: None)
  Receive Date: 20110426
  Receipt Date: 20101110
  Transmission Date: 20111010
  Serious: Yes (Other)
  Sender: FDA-Public Use
  Company Number: US-BAYER-201012025NA

PATIENT
  Age: 26 Year
  Sex: Female
  Weight: 104 kg

DRUGS (10)
  1. FORTAMET [Concomitant]
     Indication: DIABETES MELLITUS
     Dosage: UNK
     Dates: start: 20080101
  2. YASMIN [Suspect]
     Dosage: UNK
     Dates: start: 20080913, end: 20090126
  3. XYOLINE CREAM [Concomitant]
     Route: 061
  4. CLEOCIN [Concomitant]
  5. LISINOPRIL [Concomitant]
     Indication: HYPERTENSION
     Dosage: UNK
     Dates: start: 20080101
  6. 4% HQ [Concomitant]
  7. YASMIN [Suspect]
     Indication: ACNE
     Dosage: UNK
     Route: 048
     Dates: start: 20070823, end: 20080701
  8. OCELLA [Suspect]
     Indication: ACNE
     Dosage: UNK
     Route: 048
     Dates: start: 20080802, end: 20080822
  9. CLINDAMYCIN [Concomitant]
  10. ZOCOR [Concomitant]
     Indication: BLOOD CHOLESTEROL INCREASED
     Dosage: UNK
     Dates: start: 20080101

REACTIONS (4)
  - PAIN [None]
  - HEPATIC ENZYME INCREASED [None]
  - GALLBLADDER DISORDER [None]
  - CHOLECYSTITIS CHRONIC [None]
